FAERS Safety Report 4517317-2 (Version None)
Quarter: 2004Q4

REPORT INFORMATION
  Report Type: 
  Country: None (occurrence: None)
  Receive Date: 20041008
  Receipt Date: 20040715
  Transmission Date: 20050328
  Serious: No
  Sender: FDA-Public Use
  Company Number: 2004S1000150

PATIENT
  Age: 68 Year
  Sex: Male

DRUGS (2)
  1. CUBICIN [Suspect]
     Indication: OSTEOMYELITIS
     Dosage: 300 MG; Q24H; IV
     Route: 042
     Dates: start: 20040701
  2. VANCOMYCIN [Concomitant]

REACTIONS (1)
  - NAUSEA [None]
